FAERS Safety Report 18109971 (Version 1)
Quarter: 2020Q3

REPORT INFORMATION
  Report Type: Spontaneous
  Country: RO (occurrence: RO)
  Receive Date: 20200804
  Receipt Date: 20200804
  Transmission Date: 20201103
  Serious: Yes (Hospitalization)
  Sender: FDA-Public Use
  Company Number: RO-SA-2020SA200199

PATIENT

DRUGS (1)
  1. TOUJEO [Suspect]
     Active Substance: INSULIN GLARGINE
     Route: 058

REACTIONS (4)
  - Suffocation feeling [Recovered/Resolved]
  - Hyperglycaemia [Recovered/Resolved]
  - Panic attack [Recovered/Resolved]
  - Insomnia [Recovered/Resolved]
